FAERS Safety Report 5690117-6 (Version None)
Quarter: 2008Q1

REPORT INFORMATION
  Report Type: 
  Country: None (occurrence: None)
  Receive Date: 20080331
  Receipt Date: 20080331
  Transmission Date: 20080703
  Serious: Yes (Other)
  Sender: FDA-Public Use
  Company Number: None

PATIENT
  Age: 16 Year
  Sex: Female
  Weight: 72.5755 kg

DRUGS (2)
  1. SINGULAIR [Suspect]
     Indication: ASTHMA
     Dosage: 1 TABLET ON/OFF SEVERAL YEA PO
     Route: 048
     Dates: start: 20040901, end: 20080316
  2. SINGULAIR [Suspect]
     Indication: SEASONAL ALLERGY
     Dosage: 1 TABLET ON/OFF SEVERAL YEA PO
     Route: 048
     Dates: start: 20040901, end: 20080316

REACTIONS (4)
  - DEPRESSION [None]
  - MOOD ALTERED [None]
  - SUICIDAL IDEATION [None]
  - UNEVALUABLE EVENT [None]
